FAERS Safety Report 12659886 (Version 1)
Quarter: 2016Q3

REPORT INFORMATION
  Report Type: Spontaneous
  Country: FR (occurrence: FR)
  Receive Date: 20160817
  Receipt Date: 20160817
  Transmission Date: 20161109
  Serious: Yes (Other)
  Sender: FDA-Public Use
  Company Number: FR-BAYER-2016-136167

PATIENT
  Age: 21 Year
  Sex: Female
  Weight: 49 kg

DRUGS (1)
  1. JAYDESS [Suspect]
     Active Substance: LEVONORGESTREL
     Indication: CONTRACEPTION
     Dosage: 14 MCG/24HR, CONT
     Route: 015
     Dates: start: 20140627, end: 20160607

REACTIONS (3)
  - Drug ineffective [None]
  - Ectopic pregnancy with contraceptive device [None]
  - Abortion of ectopic pregnancy [None]
